FAERS Safety Report 7136517-9 (Version None)
Quarter: 2010Q4

REPORT INFORMATION
  Report Type: 
  Country: None (occurrence: None)
  Receive Date: 20101206
  Receipt Date: 20070126
  Transmission Date: 20110411
  Serious: Yes (Death)
  Sender: FDA-Public Use
  Company Number: FR-ACTELION-A-CH2007-14115

PATIENT

DRUGS (3)
  1. TRACLEER [Suspect]
  2. FLOLAN [Concomitant]
  3. SILDENAFIL [Concomitant]

REACTIONS (1)
  - DEATH [None]
